FAERS Safety Report 19822937 (Version 2)
Quarter: 2021Q3

REPORT INFORMATION
  Report Type: Spontaneous
  Country: US (occurrence: US)
  Receive Date: 20210913
  Receipt Date: 20210924
  Transmission Date: 20211014
  Serious: No
  Sender: FDA-Public Use
  Company Number: US-AMGEN-USASP2021138116

PATIENT
  Age: 89 Year
  Sex: Male
  Weight: 75.1 kg

DRUGS (2)
  1. NPLATE [Suspect]
     Active Substance: ROMIPLOSTIM
     Indication: PRODUCT USED FOR UNKNOWN INDICATION
     Dosage: 250 MICROGRAM
     Route: 065
     Dates: start: 20210224
  2. NPLATE [Suspect]
     Active Substance: ROMIPLOSTIM
     Dosage: 632.4 MICROGRAM
     Route: 065
     Dates: start: 20210224

REACTIONS (1)
  - Wrong technique in product usage process [Unknown]

NARRATIVE: CASE EVENT DATE: 20210901
